FAERS Safety Report 9379029 (Version 1)
Quarter: 2013Q3

REPORT INFORMATION
  Report Type: Spontaneous
  Country: US (occurrence: US)
  Receive Date: 20130702
  Receipt Date: 20130702
  Transmission Date: 20140515
  Serious: Yes (Other)
  Sender: FDA-Public Use
  Company Number: US-BAYER-2013-078505

PATIENT
  Sex: Female

DRUGS (4)
  1. ALEVE CAPLET [Suspect]
     Dosage: UNK
  2. MOTRIN [Suspect]
     Dosage: UNK
  3. NEURONTIN [Concomitant]
  4. CELEBREX [Concomitant]
     Dosage: ONCE A DAY

REACTIONS (1)
  - Gastric ulcer [None]
